FAERS Safety Report 23821082 (Version 1)
Quarter: 2024Q2

REPORT INFORMATION
  Report Type: Spontaneous
  Country: US (occurrence: US)
  Receive Date: 20240506
  Receipt Date: 20240506
  Transmission Date: 20240716
  Serious: No
  Sender: FDA-Public Use
  Company Number: US-002147023-NVSC2024US093155

PATIENT
  Age: 50 Year
  Weight: 68.04 kg

DRUGS (2)
  1. NILOTINIB [Suspect]
     Active Substance: NILOTINIB
     Indication: Product used for unknown indication
     Dosage: UNK
     Route: 048
  2. NILOTINIB [Suspect]
     Active Substance: NILOTINIB
     Dosage: UNK
     Route: 048

REACTIONS (1)
  - Abdominal discomfort [Unknown]
